FAERS Safety Report 6175354-9 (Version None)
Quarter: 2009Q2

REPORT INFORMATION
  Report Type: 
  Country: None (occurrence: None)
  Receive Date: 20090429
  Receipt Date: 20090413
  Transmission Date: 20091009
  Serious: Yes (Disabling, Other)
  Sender: FDA-Public Use
  Company Number: BAI_00009_2009

PATIENT
  Age: 72 Year
  Sex: 0
  Weight: 79.3795 kg

DRUGS (4)
  1. IPRATROPIUM BROMIDE [Suspect]
     Indication: EMPHYSEMA
     Dosage: (3X/DAILY RESPIRATORY (INHALATION))
     Route: 055
     Dates: start: 20090101, end: 20090324
  2. ALBUTEROL SULFATE [Suspect]
     Indication: EMPHYSEMA
     Dosage: (3X/DAILY RESPIRATORY (INHALATION))
     Route: 055
     Dates: start: 20090101, end: 20090324
  3. LISINOPRIL [Concomitant]
  4. DOXAZOSIN MESYLATE [Concomitant]

REACTIONS (2)
  - AGEUSIA [None]
  - ANOSMIA [None]
